FAERS Safety Report 4762077-3 (Version None)
Quarter: 2005Q3

REPORT INFORMATION
  Report Type: 
  Country: None (occurrence: None)
  Receive Date: 20050831
  Receipt Date: 20050601
  Transmission Date: 20060218
  Serious: No
  Sender: FDA-Public Use
  Company Number: PHEH2005US06224

PATIENT
  Age: 58 Year
  Sex: Female

DRUGS (3)
  1. ENABLEX [Suspect]
     Indication: POLLAKIURIA
     Dosage: 15 MG, QD, ORAL
     Route: 048
     Dates: start: 20050420, end: 20050505
  2. ZETIA [Concomitant]
  3. NEXIUM [Concomitant]

REACTIONS (2)
  - HYPERSENSITIVITY [None]
  - RASH [None]
